FAERS Safety Report 15793595 (Version 1)
Quarter: 2019Q1

REPORT INFORMATION
  Report Type: Spontaneous
  Country: US (occurrence: US)
  Receive Date: 20190103
  Receipt Date: 20190103
  Transmission Date: 20190417
  Serious: No
  Sender: FDA-Public Use
  Company Number: None

PATIENT
  Age: 5 Year
  Sex: Male
  Weight: 19.8 kg

DRUGS (1)
  1. MULTIVIT WITH FLUORIDE [Suspect]
     Active Substance: .ALPHA.-TOCOPHEROL\ASCORBIC ACID\CHOLECALCIFEROL\CYANOCOBALAMIN\FOLATE SODIUM\NIACIN\PYRIDOXINE\RIBOFLAVIN\SODIUM FLUORIDE\THIAMINE\VITAMIN A
     Indication: VITAMIN SUPPLEMENTATION
     Dosage: ?          QUANTITY:1 TABLET(S);?
     Route: 048
     Dates: start: 20181223, end: 20181223

REACTIONS (3)
  - Skin discolouration [None]
  - Pruritus generalised [None]
  - Generalised erythema [None]

NARRATIVE: CASE EVENT DATE: 20181223
